FAERS Safety Report 9528940 (Version 4)
Quarter: 2013Q4

REPORT INFORMATION
  Report Type: Spontaneous
  Country: SE (occurrence: SE)
  Receive Date: 20130917
  Receipt Date: 20131016
  Transmission Date: 20140711
  Serious: Yes (Other)
  Sender: FDA-Public Use
  Company Number: SE-ABBVIE-13P-150-1143886-00

PATIENT
  Age: 28 Year
  Sex: Female

DRUGS (5)
  1. HUMIRA [Suspect]
     Indication: JUVENILE IDIOPATHIC ARTHRITIS
     Dosage: 0.8ML
     Route: 058
     Dates: start: 20090114, end: 20090120
  2. HUMIRA [Suspect]
     Indication: COLITIS ULCERATIVE
  3. ASACOL [Concomitant]
     Indication: PRODUCT USED FOR UNKNOWN INDICATION
  4. ASACOL [Concomitant]
  5. PANODIL [Concomitant]
     Indication: PRODUCT USED FOR UNKNOWN INDICATION

REACTIONS (9)
  - Dizziness [Not Recovered/Not Resolved]
  - Muscular weakness [Unknown]
  - Influenza like illness [Unknown]
  - Tachycardia [Not Recovered/Not Resolved]
  - Paraesthesia [Unknown]
  - Headache [Unknown]
  - Tremor [Unknown]
  - Gastrointestinal haemorrhage [Unknown]
  - Mental disorder [Unknown]
